FAERS Safety Report 6836405-9 (Version None)
Quarter: 2010Q3

REPORT INFORMATION
  Report Type: 
  Country: None (occurrence: None)
  Receive Date: 20100713
  Receipt Date: 20100629
  Transmission Date: 20110219
  Serious: Yes (Hospitalization)
  Sender: FDA-Public Use
  Company Number: US-JNJFOC-20100502639

PATIENT
  Sex: Male
  Weight: 21.66 kg

DRUGS (2)
  1. CHILDREN'S TYLENOL SUSPENSION [Suspect]
     Indication: PAIN
  2. CHILDREN'S TYLENOL SUSPENSION [Suspect]
     Indication: PYREXIA

REACTIONS (2)
  - PRODUCT QUALITY ISSUE [None]
  - STEVENS-JOHNSON SYNDROME [None]
